FAERS Safety Report 21075124 (Version 1)
Quarter: 2022Q3

REPORT INFORMATION
  Report Type: Spontaneous
  Country: GB (occurrence: GB)
  Receive Date: 20220713
  Receipt Date: 20220713
  Transmission Date: 20221026
  Serious: Yes (Other)
  Sender: FDA-Public Use
  Company Number: GB-Accord-268750

PATIENT

DRUGS (1)
  1. AMLODIPINE [Suspect]
     Active Substance: AMLODIPINE BESYLATE
     Indication: Hypertension
     Dosage: STARTED LAST YEAR?STRENGTH: 5 MG

REACTIONS (6)
  - Upper-airway cough syndrome [Unknown]
  - Open angle glaucoma [Unknown]
  - Chest discomfort [Unknown]
  - Insomnia [Unknown]
  - Dry mouth [Unknown]
  - Dysphagia [Unknown]
